FAERS Safety Report 12526747 (Version 1)
Quarter: 2016Q3

REPORT INFORMATION
  Report Type: Spontaneous
  Country: US (occurrence: US)
  Receive Date: 20160705
  Receipt Date: 20160705
  Transmission Date: 20161109
  Serious: Yes (Hospitalization, Other)
  Sender: FDA-Public Use
  Company Number: US-ACTAVIS-2016-14132

PATIENT
  Age: 47 Year
  Sex: Female

DRUGS (2)
  1. GABAPENTIN. [Concomitant]
     Active Substance: GABAPENTIN
     Indication: PRODUCT USED FOR UNKNOWN INDICATION
     Dosage: 300 MG, DAILY
     Route: 065
  2. BACLOFEN (WATSON LABORATORIES) [Suspect]
     Active Substance: BACLOFEN
     Indication: MYOCLONUS
     Dosage: 5 MG, TID
     Route: 048

REACTIONS (6)
  - Hypertensive crisis [Recovering/Resolving]
  - Hypoventilation [Recovering/Resolving]
  - Mental status changes [Recovering/Resolving]
  - Respiratory failure [Recovering/Resolving]
  - Incorrect dose administered [Recovering/Resolving]
  - Generalised tonic-clonic seizure [Recovering/Resolving]
